FAERS Safety Report 5464838-4 (Version None)
Quarter: 2007Q3

REPORT INFORMATION
  Report Type: 
  Country: None (occurrence: None)
  Receive Date: 20070820
  Receipt Date: 20070424
  Transmission Date: 20080115
  Serious: No
  Sender: FDA-Public Use
  Company Number: TPA2007A00903

PATIENT
  Age: 38 Year
  Sex: Male
  Weight: 129.7287 kg

DRUGS (5)
  1. ROZEREM [Suspect]
     Indication: INSOMNIA
     Dosage: 8 MG, QHS, PER ORAL
     Route: 048
     Dates: start: 20070401
  2. ABILIFY [Concomitant]
  3. WELLBUTRIN XL [Concomitant]
  4. PROZAC [Concomitant]
  5. LAMICTAL [Concomitant]

REACTIONS (1)
  - URINE CANNABINOIDS INCREASED [None]
